FAERS Safety Report 11520442 (Version 1)
Quarter: 2015Q3

REPORT INFORMATION
  Report Type: Spontaneous
  Country: US (occurrence: US)
  Receive Date: 20150918
  Receipt Date: 20150918
  Transmission Date: 20151125
  Serious: Yes (Other)
  Sender: FDA-Public Use
  Company Number: US-AUROBINDO-AUR-APL-2015-08129

PATIENT
  Sex: Male

DRUGS (5)
  1. LISINOPRIL. [Interacting]
     Active Substance: LISINOPRIL
     Dosage: 20 MG, DAILY
     Route: 065
  2. SIMVASTATIN. [Concomitant]
     Active Substance: SIMVASTATIN
     Indication: PRODUCT USED FOR UNKNOWN INDICATION
     Dosage: UNK, AS NECESSARY
     Route: 065
  3. LISINOPRIL. [Suspect]
     Active Substance: LISINOPRIL
     Indication: BLOOD PRESSURE MEASUREMENT
     Dosage: UNK, AS NECESSARY
     Route: 065
  4. MELOXICAM 15MG [Interacting]
     Active Substance: MELOXICAM
     Indication: ARTHRALGIA
     Dosage: UNK UNK, AS NECESSARY
     Route: 065
  5. MELOXICAM 15MG [Interacting]
     Active Substance: MELOXICAM
     Dosage: 15 MG, DAILY
     Route: 065

REACTIONS (9)
  - Peripheral swelling [Unknown]
  - Blood pressure increased [Unknown]
  - Fatigue [Unknown]
  - Blood creatinine increased [Unknown]
  - Drug interaction [Unknown]
  - Hypertension [Unknown]
  - Nephropathy [Unknown]
  - Renal failure [Unknown]
  - Exercise tolerance decreased [Unknown]
